FAERS Safety Report 8242446-X (Version None)
Quarter: 2012Q1

REPORT INFORMATION
  Report Type: 
  Country: None (occurrence: None)
  Receive Date: 20120329
  Receipt Date: 20120320
  Transmission Date: 20120608
  Serious: Yes (Other)
  Sender: FDA-Public Use
  Company Number: US-JNJFOC-20120212194

PATIENT
  Sex: Female

DRUGS (3)
  1. STEROIDS NOS [Concomitant]
     Indication: PREMEDICATION
     Route: 065
  2. REMICADE [Suspect]
     Indication: CROHN'S DISEASE
     Route: 042
     Dates: start: 20020101, end: 20120127
  3. BENADRYL [Concomitant]
     Indication: PREMEDICATION
     Route: 065

REACTIONS (4)
  - RESPIRATORY DISORDER [None]
  - ERYTHEMA [None]
  - INFUSION RELATED REACTION [None]
  - CHEST DISCOMFORT [None]
